FAERS Safety Report 8808860 (Version 4)
Quarter: 2013Q1

REPORT INFORMATION
  Report Type: Spontaneous
  Country: JP (occurrence: None)
  Receive Date: 20120920
  Receipt Date: 20130215
  Transmission Date: 20140127
  Serious: Yes (Death, Life-Threatening)
  Sender: FDA-Public Use
  Company Number: JP-CLINIGEN HEALTHCARE LIMITED-003002

PATIENT
  Age: 65 Year
  Sex: Female

DRUGS (39)
  1. FOSCAVIR [Suspect]
     Indication: ENCEPHALITIS VIRAL
     Dates: start: 20120211, end: 20120219
  2. FOSCAVIR [Suspect]
     Indication: ENCEPHALITIS VIRAL
     Dates: start: 20120221, end: 20120221
  3. ZOSYN [Concomitant]
  4. FUNGUARD [Concomitant]
  5. VALTREX (VALTREX) [Concomitant]
  6. CIPROFLOXACIN (CIPROFLOXACIN) [Concomitant]
  7. PREDONINE (PREDONINE) [Concomitant]
  8. ITRIZOLE (ITRIZOLE) [Concomitant]
  9. MAGNESIUM SULFATE (MAGNESIUM SULFATE) [Concomitant]
  10. URSO (URSO) [Concomitant]
  11. ZYVOX (ZYVOX) [Concomitant]
  12. INDERAL (INDERAL) [Concomitant]
  13. CELECOXIB (CELECOXIB) [Concomitant]
  14. GLUCOSAN (GLUCOSAN) [Concomitant]
  15. PROGRAF (PROGRAF) [Concomitant]
  16. SOL MELCORT TAISHO (SOL MELCORT TAISHO) [Concomitant]
  17. KEPPRA (KEPPRA) [Concomitant]
  18. NICARDIPINE (NICARDIPINE) [Concomitant]
  19. GRAN (GRAN) [Concomitant]
  20. CIPROFLOXACIN (CIPROFLOXACIN) [Concomitant]
  21. NICARDIPINE (NICARDIPINE) [Concomitant]
  22. BECLOMETHASONE DIPROPIONATE (BECLOMETHASONE DIPROPIONATE) [Concomitant]
  23. SANGLOPOR (SANGLOPOR) [Concomitant]
  24. SULBACTAM/AMPICIL (SULBACTAM/AMPICIL) [Concomitant]
  25. CEFEPIME (CEFEPIME) [Concomitant]
  26. METOCLOPRAMIDE (METOCLOPRAMIDE) [Concomitant]
  27. GASTER [Concomitant]
  28. CONIEL (CONIEL) [Concomitant]
  29. CALONAL (CALONAL) [Concomitant]
  30. BLOOD TRANSFUSION, AUXILIARY PRODUCT) [Concomitant]
  31. ALEVIATIN (ALEVIATIN) [Concomitant]
  32. ACYCLOVIR (ACYCLOVIR) [Concomitant]
  33. VALTREX (VALTREX) [Concomitant]
  34. CUBICIN (CUBICIN) INJECTION [Concomitant]
  35. PREDONINE (PREDONINE) [Concomitant]
  36. ZYVOX (ZYVOX) [Concomitant]
  37. PROGRAF (PROGRAF) [Concomitant]
  38. AMBISOME (AMBISOME) [Concomitant]
  39. CELLCEPT (CELLCEPT) [Concomitant]

REACTIONS (18)
  - Infection [None]
  - Multi-organ failure [None]
  - Pulmonary oedema [None]
  - Renal failure [None]
  - Status epilepticus [None]
  - Dementia with Lewy bodies [None]
  - Blood creatine phosphokinase increased [None]
  - Herpes simplex meningoencephalitis [None]
  - Cardiac arrest [None]
  - Hyperkalaemia [None]
  - Subdural haematoma [None]
  - Subarachnoid haemorrhage [None]
  - Gliosis [None]
  - Myeloproliferative disorder [None]
  - Epilepsy [None]
  - Encephalopathy [None]
  - Blast cells [None]
  - Fall [None]
